FAERS Safety Report 10031072 (Version 2)
Quarter: 2014Q1

REPORT INFORMATION
  Report Type: Spontaneous
  Country: BR (occurrence: BR)
  Receive Date: 20140324
  Receipt Date: 20140331
  Transmission Date: 20141002
  Serious: Yes (Hospitalization, Other)
  Sender: FDA-Public Use
  Company Number: BR-BIOGENIDEC-2014BI025838

PATIENT
  Age: 29 Year
  Sex: Male

DRUGS (2)
  1. AVONEX [Suspect]
     Indication: MULTIPLE SCLEROSIS
     Route: 030
     Dates: start: 20050220, end: 20130208
  2. AVONEX [Suspect]
     Indication: MULTIPLE SCLEROSIS
     Route: 030
     Dates: start: 20130215

REACTIONS (4)
  - Cerebrovascular accident [Recovered/Resolved with Sequelae]
  - Blood pressure systolic increased [Recovered/Resolved]
  - Multiple sclerosis relapse [Recovered/Resolved]
  - Multiple sclerosis [Unknown]
